FAERS Safety Report 9637804 (Version 1)
Quarter: 2013Q4

REPORT INFORMATION
  Report Type: Spontaneous
  Country: US (occurrence: US)
  Receive Date: 20131022
  Receipt Date: 20131022
  Transmission Date: 20140711
  Serious: Yes (Hospitalization)
  Sender: FDA-Public Use
  Company Number: US-ASTRAZENECA-2013SE75873

PATIENT
  Age: 83 Year
  Sex: Male
  Weight: 80.7 kg

DRUGS (10)
  1. SYMBICORT [Suspect]
     Indication: DYSPNOEA
     Dosage: 80/4.5 MCG, 2 PUFFS BID
     Route: 055
     Dates: start: 201309
  2. SYMBICORT [Suspect]
     Indication: DYSPNOEA
     Dosage: 80/4.5 MCG,ONE PUFF DAILY
     Route: 055
     Dates: start: 201309
  3. OMEPRAZOLE [Suspect]
     Indication: GASTROOESOPHAGEAL REFLUX DISEASE
     Dosage: 20 MG, IN THE MORNING AND IN THE EVENING
     Route: 048
     Dates: start: 1990
  4. COUMADIN [Concomitant]
     Indication: CARDIAC VALVE DISEASE
     Dates: start: 1998
  5. SIMVASTATIN [Concomitant]
  6. ENALAPRIL MALEATE [Concomitant]
     Indication: CARDIAC DISORDER
  7. ENALAPRIL MALEATE [Concomitant]
     Indication: BLOOD PRESSURE ABNORMAL
  8. TERAZOSIN HCL [Concomitant]
     Indication: PROSTATIC DISORDER
  9. METOPROLOL TARTRATE [Concomitant]
     Indication: CARDIAC DISORDER
  10. DIURETIC [Concomitant]
     Indication: DIURETIC THERAPY

REACTIONS (6)
  - Infection [Unknown]
  - Weight decreased [Unknown]
  - Respiratory disorder [Unknown]
  - Tongue discolouration [Not Recovered/Not Resolved]
  - Intentional drug misuse [Unknown]
  - Off label use [Unknown]
